FAERS Safety Report 23644694 (Version 1)
Quarter: 2024Q1

REPORT INFORMATION
  Report Type: Other
  Country: US (occurrence: None)
  Receive Date: 20240318
  Receipt Date: 20240318
  Transmission Date: 20240409
  Serious: Yes (Hospitalization)
  Sender: FDA-Public Use
  Company Number: US-ROCHE-3506796

PATIENT
  Age: 45 Year
  Sex: Female
  Weight: 45.4 kg

DRUGS (1)
  1. OCREVUS [Suspect]
     Active Substance: OCRELIZUMAB
     Indication: Primary progressive multiple sclerosis
     Dosage: DATE OF TREATMENT: 19/SEP/2023, 14/SEP/2023, 07/MAR/2023, 21/FEB/2023
     Route: 042
     Dates: start: 20230221

REACTIONS (6)
  - Blood potassium decreased [Not Recovered/Not Resolved]
  - Muscular weakness [Unknown]
  - Fall [Unknown]
  - Incontinence [Unknown]
  - Feeding disorder [Unknown]
  - Eye disorder [Unknown]
